FAERS Safety Report 21167027 (Version 1)
Quarter: 2022Q3

REPORT INFORMATION
  Report Type: Spontaneous
  Country: US (occurrence: US)
  Receive Date: 20220803
  Receipt Date: 20220803
  Transmission Date: 20221026
  Serious: No
  Sender: FDA-Public Use
  Company Number: US-SAREPTA THERAPEUTICS INC.-SRP2022-002032

PATIENT
  Age: 21 Year
  Sex: Male
  Weight: 36.281 kg

DRUGS (2)
  1. AMONDYS 45 [Suspect]
     Active Substance: CASIMERSEN
     Indication: Product used for unknown indication
     Dosage: UNK
     Route: 065
  2. AMONDYS 45 [Suspect]
     Active Substance: CASIMERSEN
     Dosage: UNK WEEKLY

REACTIONS (3)
  - COVID-19 [Unknown]
  - Poor venous access [Unknown]
  - Refusal of treatment by patient [Unknown]

NARRATIVE: CASE EVENT DATE: 20220129
